FAERS Safety Report 17974061 (Version 1)
Quarter: 2020Q3

REPORT INFORMATION
  Report Type: Spontaneous
  Country: IN (occurrence: IN)
  Receive Date: 20200702
  Receipt Date: 20200702
  Transmission Date: 20201103
  Serious: Yes (Congenital Anomaly)
  Sender: FDA-Public Use
  Company Number: IN-CELLTRION-2020-IN-000084

PATIENT
  Age: 23 Year
  Sex: Female

DRUGS (1)
  1. PIOGLITAZONE HYDROCHLORIDE TABLETS (NON?SPECIFIC) (ANDA 076798) [Suspect]
     Active Substance: PIOGLITAZONE HYDROCHLORIDE
     Indication: POLYCYSTIC OVARIES
     Dosage: 15 MG

REACTIONS (5)
  - Bone development abnormal [Not Recovered/Not Resolved]
  - Foetal growth restriction [Not Recovered/Not Resolved]
  - Oedema [Not Recovered/Not Resolved]
  - Foetal exposure during pregnancy [Unknown]
  - Ascites [Not Recovered/Not Resolved]

NARRATIVE: CASE EVENT DATE: 2015
